FAERS Safety Report 20822262 (Version 1)
Quarter: 2022Q2

REPORT INFORMATION
  Report Type: Spontaneous
  Country: US (occurrence: US)
  Receive Date: 20220512
  Receipt Date: 20220512
  Transmission Date: 20220721
  Serious: No
  Sender: FDA-Public Use
  Company Number: US-PFIZER INC-202200284736

PATIENT
  Age: 68 Year
  Sex: Male

DRUGS (3)
  1. FUROSEMIDE [Suspect]
     Active Substance: FUROSEMIDE
     Indication: Lymphadenopathy
     Dosage: 2X TPD
     Dates: start: 20210925
  2. FUROSEMIDE [Suspect]
     Active Substance: FUROSEMIDE
     Indication: Swelling
  3. FUROSEMIDE [Suspect]
     Active Substance: FUROSEMIDE
     Indication: Hydrocele

REACTIONS (2)
  - Off label use [Unknown]
  - Drug ineffective for unapproved indication [Unknown]

NARRATIVE: CASE EVENT DATE: 20210925
